FAERS Safety Report 24367491 (Version 1)
Quarter: 2024Q3

REPORT INFORMATION
  Report Type: Spontaneous
  Country: US (occurrence: US)
  Receive Date: 20240926
  Receipt Date: 20240926
  Transmission Date: 20241016
  Serious: No
  Sender: PRASCO
  Company Number: US-Prasco Laboratories-PRAS20241164

PATIENT
  Sex: Female

DRUGS (2)
  1. ESTRADIOL [Suspect]
     Active Substance: ESTRADIOL
     Indication: Product used for unknown indication
     Dosage: 1 GRAM
     Route: 067
     Dates: start: 202406, end: 202407
  2. ESTRADIOL [Suspect]
     Active Substance: ESTRADIOL
     Dosage: 1 GRAM
     Route: 067
     Dates: start: 20240722

REACTIONS (5)
  - Application site pain [Recovered/Resolved]
  - Off label use [None]
  - Product delivery mechanism issue [None]
  - Product dose omission issue [None]
  - Product container issue [None]
